FAERS Safety Report 4918223-1 (Version None)
Quarter: 2006Q1

REPORT INFORMATION
  Report Type: 
  Country: None (occurrence: None)
  Receive Date: 20060215
  Receipt Date: 20060210
  Transmission Date: 20060701
  Serious: Yes (Hospitalization)
  Sender: FDA-Public Use
  Company Number: S05-FRA-03787-01

PATIENT
  Age: 80 Year
  Sex: Female

DRUGS (9)
  1. MEMANTINE HCL [Suspect]
     Indication: DEMENTIA ALZHEIMER'S TYPE
     Dosage: 5 MG QD PO
     Route: 048
     Dates: start: 20050726, end: 20050817
  2. SPASFON [Concomitant]
  3. CITALOPRAM HYDROBROMIDE [Concomitant]
  4. ARICEPT [Concomitant]
  5. DURAGESIC [Concomitant]
  6. PLAVIX [Concomitant]
  7. EQUANIL [Concomitant]
  8. ISOPTIN [Concomitant]
  9. PRAVASTATIN [Concomitant]

REACTIONS (6)
  - C-REACTIVE PROTEIN INCREASED [None]
  - CONDITION AGGRAVATED [None]
  - CREATININE RENAL CLEARANCE DECREASED [None]
  - GRAND MAL CONVULSION [None]
  - HEMIPLEGIA [None]
  - PYREXIA [None]
